FAERS Safety Report 5562693-5 (Version None)
Quarter: 2007Q4

REPORT INFORMATION
  Report Type: 
  Country: None (occurrence: None)
  Receive Date: 20071217
  Receipt Date: 20071212
  Transmission Date: 20080405
  Serious: Yes (Death)
  Sender: FDA-Public Use
  Company Number: AU-BAYER-200717950GPV

PATIENT
  Age: 30 Year
  Sex: Male
  Weight: 66 kg

DRUGS (14)
  1. NEXAVAR [Suspect]
     Route: 048
  2. DEXAMETHASONE TAB [Concomitant]
     Indication: HEPATIC PAIN
     Route: 065
     Dates: start: 20071006, end: 20071010
  3. NILSTAT [Concomitant]
     Indication: CANDIDIASIS
     Dosage: TOTAL DAILY DOSE: 4 ML
     Route: 048
     Dates: start: 20071007, end: 20071010
  4. OXYCONTIN [Concomitant]
     Indication: PAIN
     Dosage: TOTAL DAILY DOSE: 80 MG
     Route: 048
     Dates: start: 20071006, end: 20071010
  5. FLUCONAZOLE [Concomitant]
     Indication: CANDIDIASIS
     Route: 048
     Dates: start: 20071006, end: 20071010
  6. COLOXYL WITH SENNA [Concomitant]
     Indication: CONSTIPATION
     Route: 048
     Dates: start: 20071006, end: 20071010
  7. LACTULOSE [Concomitant]
     Indication: CONSTIPATION
     Route: 048
     Dates: start: 20071006, end: 20071010
  8. HALOPERIDOL [Concomitant]
     Indication: AGITATION
     Route: 065
     Dates: start: 20071006, end: 20071006
  9. HALOPERIDOL [Concomitant]
     Route: 065
     Dates: start: 20071007, end: 20071010
  10. HALOPERIDOL [Concomitant]
     Route: 065
     Dates: start: 20071008, end: 20071009
  11. RIVOTRIL [Concomitant]
     Indication: AGITATION
     Route: 065
     Dates: start: 20071008, end: 20071009
  12. OXYNORM [Concomitant]
     Indication: PAIN
     Route: 065
     Dates: start: 20071010, end: 20071010
  13. MIDAZOLAM HCL [Concomitant]
     Indication: AGITATION
     Route: 065
     Dates: start: 20071010, end: 20071010
  14. ENDONE [Concomitant]
     Indication: PAIN
     Route: 065
     Dates: start: 20071005, end: 20071005

REACTIONS (2)
  - HEPATIC FAILURE [None]
  - HEPATIC NEOPLASM MALIGNANT [None]
